FAERS Safety Report 23580021 (Version 1)
Quarter: 2024Q1

REPORT INFORMATION
  Report Type: Spontaneous
  Country: US (occurrence: US)
  Receive Date: 20240229
  Receipt Date: 20240229
  Transmission Date: 20240409
  Serious: No
  Sender: FDA-Public Use
  Company Number: US-BRISTOL-MYERS SQUIBB COMPANY-2024-032443

PATIENT
  Age: 65 Year
  Sex: Female

DRUGS (1)
  1. LENALIDOMIDE [Suspect]
     Active Substance: LENALIDOMIDE
     Indication: Bone marrow transplant
     Route: 048

REACTIONS (5)
  - Insurance issue [Unknown]
  - Diarrhoea [Unknown]
  - Pruritus [Unknown]
  - Therapy interrupted [Unknown]
  - Off label use [Unknown]
